FAERS Safety Report 7920577-9 (Version None)
Quarter: 2011Q4

REPORT INFORMATION
  Report Type: 
  Country: None (occurrence: None)
  Receive Date: 20111117
  Receipt Date: 20111114
  Transmission Date: 20120403
  Serious: Yes (Other)
  Sender: FDA-Public Use
  Company Number: PHHY2011NZ90256

PATIENT
  Sex: Female

DRUGS (8)
  1. CALCIUM CARBONATE [Concomitant]
     Dosage: 1 UKN, BID
     Route: 048
  2. ASPIRIN [Concomitant]
     Dosage: 100 MG, DAILY
  3. CLOZARIL [Suspect]
     Indication: SCHIZOPHRENIA
     Dosage: 50 MG, UNK
     Route: 048
     Dates: start: 20050811
  4. FUROSEMIDE [Concomitant]
     Dosage: 40 MG, DAILY
     Route: 048
  5. CLOZARIL [Suspect]
     Dosage: 25 MG, UNK
     Route: 048
     Dates: end: 20111009
  6. LORAZEPAM [Concomitant]
     Dosage: 0.5-1MG PRN UP TO TDS
     Route: 048
  7. METOPROLOL TARTRATE [Concomitant]
     Dosage: 23.75 MG, DAILY
     Route: 048
  8. COLECALCIFEROL [Concomitant]
     Dosage: 1.25 MG, QMO
     Route: 048

REACTIONS (2)
  - POOR VENOUS ACCESS [None]
  - DEMENTIA [None]
